FAERS Safety Report 8131841-5 (Version None)
Quarter: 2012Q1

REPORT INFORMATION
  Report Type: 
  Country: None (occurrence: None)
  Receive Date: 20120213
  Receipt Date: 20120130
  Transmission Date: 20120608
  Serious: Yes (Disabling)
  Sender: FDA-Public Use
  Company Number: DE-CELGENEUS-062-21880-12013136

PATIENT
  Age: 81 Year
  Sex: Male
  Weight: 85 kg

DRUGS (14)
  1. DEXAMETHASONE [Concomitant]
     Indication: MULTIPLE MYELOMA
     Route: 048
     Dates: start: 20100101, end: 20100901
  2. COTRIM DS [Concomitant]
     Route: 065
     Dates: start: 20100708
  3. PANTOPRAZOLE [Concomitant]
     Route: 065
     Dates: start: 20100902
  4. REVLIMID [Suspect]
     Indication: MULTIPLE MYELOMA
     Route: 048
     Dates: start: 20100101, end: 20100701
  5. SILAPO [Concomitant]
     Dosage: 40000 IE
     Route: 065
     Dates: start: 20100805
  6. AMPHOTERICIN B [Concomitant]
     Route: 065
     Dates: start: 20100619
  7. URALYT U [Concomitant]
     Route: 065
     Dates: start: 20100619
  8. SILAPO [Concomitant]
     Dosage: 30000 WEEK
     Route: 065
     Dates: start: 20100619, end: 20110801
  9. SILAPO [Concomitant]
     Dosage: 40000 IE
     Route: 065
     Dates: start: 20100902
  10. TILIDINE [Concomitant]
     Route: 065
     Dates: start: 20100902
  11. POTASSIUM SODIUM HYDROGEN CITRATE [Concomitant]
     Route: 065
     Dates: start: 20100805
  12. POTASSIUM SODIUM HYDROGEN CITRATE [Concomitant]
     Route: 065
     Dates: start: 20100902
  13. REVLIMID [Suspect]
     Route: 048
     Dates: start: 20100701, end: 20100901
  14. NOVALGIN [Concomitant]
     Route: 065
     Dates: start: 20100702

REACTIONS (1)
  - MYELODYSPLASTIC SYNDROME [None]
